FAERS Safety Report 7619015-5 (Version None)
Quarter: 2011Q3

REPORT INFORMATION
  Report Type: 
  Country: None (occurrence: None)
  Receive Date: 20110718
  Receipt Date: 20110708
  Transmission Date: 20111222
  Serious: Yes (Hospitalization)
  Sender: FDA-Public Use
  Company Number: IT-ABBOTT-11P-083-0837777-00

PATIENT
  Age: 51 Year
  Sex: Female

DRUGS (5)
  1. DEPAKENE [Suspect]
     Indication: SUICIDE ATTEMPT
     Dosage: 500 MG; TOTAL
     Route: 048
     Dates: start: 20110416, end: 20110416
  2. ACETAMINOPHEN [Suspect]
     Indication: SUICIDE ATTEMPT
     Dosage: 500 MG; TOTAL
     Route: 048
     Dates: start: 20110416, end: 20110416
  3. EN [Suspect]
     Indication: SUICIDE ATTEMPT
     Dosage: 1 MILLIGRAM(S)/MILLILITRE; TOTAL
     Route: 048
     Dates: start: 20110416, end: 20110416
  4. LASIX [Suspect]
     Indication: SUICIDE ATTEMPT
     Dosage: 25 MG; TOTAL
     Route: 048
     Dates: start: 20110416, end: 20110416
  5. XANAX [Suspect]
     Indication: SUICIDE ATTEMPT
     Dosage: 0.50 MG; TOTAL
     Route: 048
     Dates: start: 20110416, end: 20110416

REACTIONS (7)
  - PSYCHOMOTOR RETARDATION [None]
  - MULTIPLE DRUG OVERDOSE INTENTIONAL [None]
  - ALANINE AMINOTRANSFERASE INCREASED [None]
  - ASPARTATE AMINOTRANSFERASE INCREASED [None]
  - SUICIDE ATTEMPT [None]
  - TRANSAMINASES INCREASED [None]
  - GAMMA-GLUTAMYLTRANSFERASE INCREASED [None]
